FAERS Safety Report 12897189 (Version 1)
Quarter: 2016Q4

REPORT INFORMATION
  Report Type: Spontaneous
  Country: US (occurrence: US)
  Receive Date: 20161031
  Receipt Date: 20161031
  Transmission Date: 20170207
  Serious: No
  Sender: FDA-Public Use
  Company Number: US-ENDO PHARMACEUTICALS INC.-2016-001842

PATIENT
  Age: 63 Year
  Sex: Male
  Weight: 90.8 kg

DRUGS (1)
  1. MORPHINE SULFATE ER [Suspect]
     Active Substance: MORPHINE SULFATE
     Indication: PAIN
     Route: 048
     Dates: start: 2014

REACTIONS (2)
  - Product physical issue [Unknown]
  - Dry mouth [Unknown]

NARRATIVE: CASE EVENT DATE: 201602
